FAERS Safety Report 15315340 (Version 1)
Quarter: 2018Q3

REPORT INFORMATION
  Report Type: Spontaneous
  Country: US (occurrence: US)
  Receive Date: 20180824
  Receipt Date: 20180824
  Transmission Date: 20181010
  Serious: Yes (Hospitalization, Disabling)
  Sender: FDA-Public Use
  Company Number: US-MYLANLABS-2018M1061855

PATIENT
  Age: 8 Year
  Sex: Male

DRUGS (4)
  1. PREDNISONE. [Suspect]
     Active Substance: PREDNISONE
     Dosage: FOLLOWING RELAPSE OF NEPHROTIC SYNDROME
     Route: 065
  2. PREDNISONE. [Suspect]
     Active Substance: PREDNISONE
     Indication: NEPHROTIC SYNDROME
     Route: 065
  3. PREDNISONE. [Suspect]
     Active Substance: PREDNISONE
     Dosage: DOSE TAPERED (TWO MONTHS PRIOR TO THE PRESENTATION)
     Route: 065
  4. PREDNISONE. [Suspect]
     Active Substance: PREDNISONE
     Dosage: ONE MONTH PRIOR TO THE PRESENTATION
     Route: 065

REACTIONS (4)
  - Extremity necrosis [Recovered/Resolved]
  - Peripheral ischaemia [Recovered/Resolved]
  - Peripheral artery thrombosis [Recovered/Resolved]
  - Dry gangrene [Recovered/Resolved]
